FAERS Safety Report 8100702-X (Version None)
Quarter: 2012Q1

REPORT INFORMATION
  Report Type: 
  Country: None (occurrence: None)
  Receive Date: 20120129
  Receipt Date: 20111118
  Transmission Date: 20120608
  Serious: No
  Sender: FDA-Public Use
  Company Number: US-ABBOTT-11P-163-0871926-00

PATIENT
  Sex: Male
  Weight: 114.86 kg

DRUGS (3)
  1. HUMIRA [Suspect]
     Indication: CROHN'S DISEASE
     Route: 058
     Dates: start: 20080101
  2. M.V.I. [Concomitant]
     Indication: VITAMIN SUPPLEMENTATION
     Dosage: TAB DAILY
  3. MICARDIS [Concomitant]
     Indication: HYPERTENSION

REACTIONS (6)
  - ABDOMINAL DISCOMFORT [None]
  - INJECTION SITE PAIN [None]
  - ARTHRALGIA [None]
  - PRODUCT QUALITY ISSUE [None]
  - INSOMNIA [None]
  - DRUG INEFFECTIVE [None]
